FAERS Safety Report 10492407 (Version 1)
Quarter: 2014Q4

REPORT INFORMATION
  Report Type: Spontaneous
  Country: US (occurrence: US)
  Receive Date: 20141002
  Receipt Date: 20141002
  Transmission Date: 20150528
  Serious: No
  Sender: FDA-Public Use
  Company Number: US-GLAXOSMITHKLINE-A1070612A

PATIENT
  Age: 64 Year
  Sex: Female

DRUGS (5)
  1. ADVAIR HFA [Suspect]
     Active Substance: FLUTICASONE PROPIONATE\SALMETEROL XINAFOATE
     Indication: ASTHMA
     Dosage: 1PUFF PER DAY
     Route: 055
     Dates: start: 2010
  2. IBUPROFEN. [Concomitant]
     Active Substance: IBUPROFEN
  3. NASONEX [Concomitant]
     Active Substance: MOMETASONE FUROATE
  4. PROVENTIL [Concomitant]
     Active Substance: ALBUTEROL
  5. NAPROXEN. [Concomitant]
     Active Substance: NAPROXEN

REACTIONS (9)
  - Drug ineffective [Unknown]
  - Vision blurred [Recovered/Resolved]
  - Drug dose omission [Unknown]
  - Malaise [Recovered/Resolved]
  - Chest discomfort [Unknown]
  - Dizziness [Recovered/Resolved]
  - Glucose tolerance impaired [Unknown]
  - Blood pressure increased [Unknown]
  - Middle insomnia [Unknown]

NARRATIVE: CASE EVENT DATE: 20140421
